FAERS Safety Report 6121154-5 (Version None)
Quarter: 2009Q1

REPORT INFORMATION
  Report Type: 
  Country: None (occurrence: None)
  Receive Date: 20090317
  Receipt Date: 20090313
  Transmission Date: 20090719
  Serious: Yes (Disabling)
  Sender: FDA-Public Use
  Company Number: B0559176A

PATIENT
  Age: 18 Year
  Sex: Male

DRUGS (5)
  1. RELENZA [Suspect]
     Indication: INFLUENZA
     Route: 055
     Dates: start: 20090202, end: 20090202
  2. CALONAL [Concomitant]
     Dosage: 400MG PER DAY
     Route: 065
     Dates: start: 20090202
  3. DASEN [Concomitant]
     Dosage: 10MG PER DAY
     Route: 048
     Dates: start: 20090202
  4. MUCOSTA [Concomitant]
     Dosage: 100MG PER DAY
     Route: 048
     Dates: start: 20090202
  5. MEDICON [Concomitant]
     Dosage: 30MG PER DAY
     Route: 048
     Dates: start: 20090202

REACTIONS (5)
  - ANXIETY [None]
  - EUPHORIC MOOD [None]
  - MOVEMENT DISORDER [None]
  - RESTLESSNESS [None]
  - TINNITUS [None]
